FAERS Safety Report 7540137-1 (Version None)
Quarter: 2011Q2

REPORT INFORMATION
  Report Type: 
  Country: None (occurrence: None)
  Receive Date: 20110610
  Receipt Date: 20110606
  Transmission Date: 20111010
  Serious: Yes (Hospitalization, Other)
  Sender: FDA-Public Use
  Company Number: CA-ABBOTT-11P-028-0728831-00

PATIENT
  Sex: Female
  Weight: 108.96 kg

DRUGS (6)
  1. NEXIUM [Concomitant]
     Indication: GASTROOESOPHAGEAL REFLUX DISEASE
     Route: 048
     Dates: start: 20060101
  2. ASACOL [Concomitant]
     Indication: GASTROOESOPHAGEAL REFLUX DISEASE
     Route: 048
     Dates: start: 19900101
  3. URSO 250 [Concomitant]
     Indication: CHOLANGITIS SCLEROSING
     Route: 048
     Dates: start: 20060101
  4. HUMIRA [Suspect]
     Indication: CROHN'S DISEASE
     Route: 058
     Dates: start: 20101204
  5. ATACAND [Concomitant]
     Indication: HYPERTENSION
     Route: 048
     Dates: start: 20090101
  6. TIAZAC [Concomitant]
     Indication: HYPERTENSION
     Route: 048
     Dates: start: 20090101

REACTIONS (5)
  - CROHN'S DISEASE [None]
  - HAEMATOCHEZIA [None]
  - JOINT SWELLING [None]
  - NAUSEA [None]
  - PYREXIA [None]
